FAERS Safety Report 5553696-5 (Version None)
Quarter: 2007Q4

REPORT INFORMATION
  Report Type: 
  Country: None (occurrence: None)
  Receive Date: 20071211
  Receipt Date: 20071129
  Transmission Date: 20080405
  Serious: Yes (Hospitalization)
  Sender: FDA-Public Use
  Company Number: SPV1-2007-05062

PATIENT
  Age: 14 Year
  Sex: Male
  Weight: 41.5 kg

DRUGS (3)
  1. PENTASA [Suspect]
     Indication: CROHN'S DISEASE
     Dosage: 2000 MG, 2X/DAY:BID, ORAL
     Route: 048
     Dates: start: 20071004, end: 20071021
  2. ASACOL [Suspect]
     Indication: CROHN'S DISEASE
     Dosage: 1200 MG, 3X/DAY:TID, ORAL
     Route: 048
     Dates: start: 20071026, end: 20071122
  3. CANASA [Suspect]
     Indication: CROHN'S DISEASE
     Dosage: 1000 MG, 1X/DAY: QD HS, RECTAL
     Route: 054
     Dates: start: 20071024

REACTIONS (14)
  - DEHYDRATION [None]
  - DIARRHOEA HAEMORRHAGIC [None]
  - DYSPHAGIA [None]
  - EATING DISORDER [None]
  - EMOTIONAL DISORDER [None]
  - EYE PAIN [None]
  - HAEMOGLOBIN DECREASED [None]
  - LETHARGY [None]
  - MEDICATION RESIDUE [None]
  - PHARYNGOLARYNGEAL PAIN [None]
  - PLEURAL EFFUSION [None]
  - PULMONARY OEDEMA [None]
  - TREATMENT NONCOMPLIANCE [None]
  - WEIGHT DECREASED [None]
